FAERS Safety Report 11270614 (Version 2)
Quarter: 2015Q4

REPORT INFORMATION
  Report Type: Not Available
  Country: DK (occurrence: DK)
  Receive Date: 20150714
  Receipt Date: 20151011
  Transmission Date: 20160304
  Serious: Yes (Hospitalization, Congenital Anomaly)
  Sender: FDA-Public Use
  Company Number: DK-MUNDIPHARMA DS AND PHARMACOVIGILANCE-GBR-2015-0029362

PATIENT
  Age: 0 Day
  Sex: Female

DRUGS (3)
  1. PANODIL [Suspect]
     Active Substance: ACETAMINOPHEN
     Indication: PAIN
     Dosage: 1000 MG UNK
     Route: 064
  2. OXYCONTIN [Suspect]
     Active Substance: OXYCODONE HYDROCHLORIDE
     Indication: FOETAL EXPOSURE DURING PREGNANCY
     Dosage: 20 MG  UNK
     Route: 064
  3. LYRICA [Suspect]
     Active Substance: PREGABALIN
     Indication: NEURALGIA
     Dosage: 150 MG, UNK
     Route: 064

REACTIONS (4)
  - Drug withdrawal syndrome neonatal [Unknown]
  - Dyspnoea [Unknown]
  - Foetal exposure during pregnancy [Recovered/Resolved]
  - Pierre Robin syndrome [Not Recovered/Not Resolved]

NARRATIVE: CASE EVENT DATE: 20150322
